FAERS Safety Report 19567433 (Version 3)
Quarter: 2021Q3

REPORT INFORMATION
  Report Type: Spontaneous
  Country: US (occurrence: US)
  Receive Date: 20210714
  Receipt Date: 20210920
  Transmission Date: 20211014
  Serious: No
  Sender: FDA-Public Use
  Company Number: US-SA-2021SA225654

PATIENT
  Age: 69 Year
  Sex: Female

DRUGS (1)
  1. LANTUS SOLOSTAR [Suspect]
     Active Substance: INSULIN GLARGINE
     Dosage: 40 IU, Q8H
     Route: 065

REACTIONS (9)
  - Inappropriate schedule of product administration [Unknown]
  - Gastric bypass [Unknown]
  - Blood glucose decreased [Unknown]
  - Fungal infection [Not Recovered/Not Resolved]
  - Scar [Unknown]
  - Hernia [Unknown]
  - Gallbladder disorder [Unknown]
  - Injection site pain [Unknown]
  - Visual impairment [Unknown]
